FAERS Safety Report 16928233 (Version 1)
Quarter: 2019Q4

REPORT INFORMATION
  Report Type: Spontaneous
  Country: US (occurrence: US)
  Receive Date: 20191017
  Receipt Date: 20191017
  Transmission Date: 20200122
  Serious: Yes (Hospitalization, Other)
  Sender: FDA-Public Use
  Company Number: US-ROCHE-2434199

PATIENT
  Sex: Male

DRUGS (1)
  1. RITUXAN [Suspect]
     Active Substance: RITUXIMAB
     Indication: RHEUMATOID ARTHRITIS
     Dosage: ONGOING: UNKNOWN
     Route: 065

REACTIONS (5)
  - Urinary incontinence [Unknown]
  - Muscular weakness [Not Recovered/Not Resolved]
  - Sepsis [Unknown]
  - Dehydration [Unknown]
  - Urinary tract infection [Unknown]
